FAERS Safety Report 6620048-6 (Version None)
Quarter: 2010Q1

REPORT INFORMATION
  Report Type: 
  Country: None (occurrence: None)
  Receive Date: 20100223
  Receipt Date: 20091207
  Transmission Date: 20100710
  Serious: No
  Sender: FDA-Public Use
  Company Number: 005006

PATIENT
  Sex: Male

DRUGS (1)
  1. CIMZIA [Suspect]
     Dosage: (400 MG SUBCUTANEOUS)
     Route: 058
     Dates: start: 20090426

REACTIONS (4)
  - DIARRHOEA [None]
  - FATIGUE [None]
  - TREATMENT NONCOMPLIANCE [None]
  - VITAMIN B COMPLEX DEFICIENCY [None]
